FAERS Safety Report 7927923-0 (Version None)
Quarter: 2011Q4

REPORT INFORMATION
  Report Type: 
  Country: None (occurrence: None)
  Receive Date: 20111118
  Receipt Date: 20111115
  Transmission Date: 20120403
  Serious: Yes (Life-Threatening)
  Sender: FDA-Public Use
  Company Number: US-CEPHALON-2011005841

PATIENT
  Sex: Male
  Weight: 79 kg

DRUGS (3)
  1. LENALIDOMIDE [Suspect]
     Indication: MULTIPLE MYELOMA
     Route: 048
     Dates: start: 20110105, end: 20110123
  2. BENDAMUSTINE HCL [Suspect]
     Indication: MULTIPLE MYELOMA
     Route: 042
     Dates: start: 20110105, end: 20110106
  3. DEXAMETHASONE [Suspect]
     Indication: MULTIPLE MYELOMA
     Route: 048
     Dates: start: 20110105, end: 20110126

REACTIONS (1)
  - ADENOCARCINOMA PANCREAS [None]
